FAERS Safety Report 15598474 (Version 3)
Quarter: 2019Q4

REPORT INFORMATION
  Report Type: Spontaneous
  Country: US (occurrence: US)
  Receive Date: 20181108
  Receipt Date: 20191121
  Transmission Date: 20200122
  Serious: Yes (Other)
  Sender: FDA-Public Use
  Company Number: US-SA-2018SA305098

PATIENT
  Sex: Female
  Weight: 86 kg

DRUGS (6)
  1. DOCETAXEL. [Suspect]
     Active Substance: DOCETAXEL
     Indication: BREAST CANCER FEMALE
     Dosage: UNK
     Route: 042
     Dates: start: 20140117, end: 20140117
  2. PERTUZUMAB. [Concomitant]
     Active Substance: PERTUZUMAB
  3. CARBOPLATIN. [Concomitant]
     Active Substance: CARBOPLATIN
  4. PARAPLATIN [Concomitant]
     Active Substance: CARBOPLATIN
  5. DOCETAXEL. [Suspect]
     Active Substance: DOCETAXEL
     Dosage: UNK
     Route: 042
     Dates: start: 20140502, end: 20140502
  6. HERCEPTIN [Concomitant]
     Active Substance: TRASTUZUMAB

REACTIONS (2)
  - Alopecia [Not Recovered/Not Resolved]
  - Psychological trauma [Unknown]
